FAERS Safety Report 6853358-8 (Version None)
Quarter: 2010Q3

REPORT INFORMATION
  Report Type: 
  Country: None (occurrence: None)
  Receive Date: 20100717
  Receipt Date: 20071205
  Transmission Date: 20110219
  Serious: No
  Sender: FDA-Public Use
  Company Number: US-PFIZER INC-2007103801

PATIENT
  Sex: Female
  Weight: 75 kg

DRUGS (6)
  1. CHANTIX [Suspect]
     Indication: SMOKING CESSATION THERAPY
     Dates: start: 20071203
  2. ZOCOR [Concomitant]
  3. LEVOTHROID [Concomitant]
  4. CELEXA [Concomitant]
  5. ESTRADIOL [Concomitant]
  6. INFLUENZA VACCINE [Concomitant]
     Dates: start: 20071101, end: 20071101

REACTIONS (4)
  - BODY TEMPERATURE INCREASED [None]
  - CHILLS [None]
  - INFLUENZA LIKE ILLNESS [None]
  - PAIN [None]
